FAERS Safety Report 5332831-8 (Version None)
Quarter: 2007Q2

REPORT INFORMATION
  Report Type: 
  Country: None (occurrence: None)
  Receive Date: 20070521
  Receipt Date: 20070510
  Transmission Date: 20071010
  Serious: Yes (Hospitalization, Other)
  Sender: FDA-Public Use
  Company Number: EMR64300504-7

PATIENT
  Age: 57 Year
  Sex: Male

DRUGS (8)
  1. NIASPAN [Suspect]
     Dosage: 500 MG QD PO
     Route: 048
     Dates: start: 20070112, end: 20070309
  2. NIASPAN [Suspect]
     Dosage: 1000 MG QD PO
     Route: 048
     Dates: start: 20070310, end: 20070321
  3. MARCUMAR [Concomitant]
  4. ASPIRIN [Concomitant]
  5. METO ZEROK (METOPROLOL SUCCINATE) [Concomitant]
  6. INEGY (SIMVASTATIN, EZETIMIBE) [Concomitant]
  7. IRBESARTAN [Concomitant]
  8. AMIODARON (AMIODARONE) [Concomitant]

REACTIONS (8)
  - ALANINE AMINOTRANSFERASE INCREASED [None]
  - ASPARTATE AMINOTRANSFERASE INCREASED [None]
  - ATRIAL FIBRILLATION [None]
  - BLOOD ALKALINE PHOSPHATASE INCREASED [None]
  - DUODENAL ULCER HAEMORRHAGE [None]
  - GAMMA-GLUTAMYLTRANSFERASE INCREASED [None]
  - HOT FLUSH [None]
  - LIVER DISORDER [None]
